FAERS Safety Report 10368800 (Version 1)
Quarter: 2014Q3

REPORT INFORMATION
  Report Type: Spontaneous
  Country: US (occurrence: US)
  Receive Date: 20140807
  Receipt Date: 20140807
  Transmission Date: 20150326
  Serious: Yes (Other)
  Sender: FDA-Public Use
  Company Number: US-MYLAN-2014M1000724

PATIENT

DRUGS (1)
  1. KETAMINE [Suspect]
     Active Substance: KETAMINE
     Dosage: 3-5 TIMES DAILY FOR 4 YEARS
     Route: 065

REACTIONS (3)
  - Drug abuse [Recovering/Resolving]
  - Cystitis [Recovering/Resolving]
  - Hydronephrosis [Recovering/Resolving]
